FAERS Safety Report 9331045 (Version 3)
Quarter: 2013Q3

REPORT INFORMATION
  Report Type: Spontaneous
  Country: US (occurrence: US)
  Receive Date: 20130605
  Receipt Date: 20130725
  Transmission Date: 20140515
  Serious: Yes (Disabling, Other)
  Sender: FDA-Public Use
  Company Number: US-JNJFOC-20130516369

PATIENT
  Age: 52 Year
  Sex: Female

DRUGS (8)
  1. LEVAQUIN [Suspect]
     Indication: INFECTION
     Route: 048
     Dates: end: 20080827
  2. LEVAQUIN [Suspect]
     Indication: INFECTION
     Route: 048
     Dates: start: 200811
  3. CIPRO [Suspect]
     Indication: PRODUCT USED FOR UNKNOWN INDICATION
     Route: 065
     Dates: start: 2008
  4. FACTIVE [Suspect]
     Indication: PRODUCT USED FOR UNKNOWN INDICATION
     Route: 065
     Dates: start: 2008
  5. FACTIVE [Suspect]
     Indication: PRODUCT USED FOR UNKNOWN INDICATION
     Route: 065
     Dates: start: 200811
  6. CORTICOSTEROID UNSPECIFIED [Suspect]
     Indication: PRODUCT USED FOR UNKNOWN INDICATION
     Route: 065
     Dates: start: 2008
  7. PAIN MEDICATION [Concomitant]
     Indication: CYSTOPEXY
     Route: 065
     Dates: start: 20080831
  8. PAIN MEDICATION [Concomitant]
     Indication: HYSTERECTOMY
     Route: 065
     Dates: start: 20080831

REACTIONS (30)
  - Adverse drug reaction [Unknown]
  - Nervous system disorder [Unknown]
  - Neuropathy peripheral [Unknown]
  - Nerve injury [Recovering/Resolving]
  - Facial nerve disorder [Unknown]
  - Meningioma [Recovering/Resolving]
  - Cyst [Recovering/Resolving]
  - Spinal column stenosis [Unknown]
  - Incontinence [Unknown]
  - Sexual dysfunction [Unknown]
  - Diplopia [Unknown]
  - Tendon disorder [Unknown]
  - Glossodynia [Unknown]
  - Weight bearing difficulty [Unknown]
  - Depression [Recovering/Resolving]
  - Cognitive disorder [Not Recovered/Not Resolved]
  - Burning sensation [Unknown]
  - Joint stiffness [Recovering/Resolving]
  - Intervertebral disc degeneration [Recovering/Resolving]
  - Cataract [Recovering/Resolving]
  - Osteoarthritis [Recovering/Resolving]
  - Osteopenia [Recovering/Resolving]
  - Heart rate increased [Recovering/Resolving]
  - Body height decreased [Recovering/Resolving]
  - Epicondylitis [Recovering/Resolving]
  - Cervicogenic headache [Recovering/Resolving]
  - Drug effect decreased [Recovering/Resolving]
  - Flushing [Recovering/Resolving]
  - Insomnia [Recovering/Resolving]
  - Pruritus [Recovering/Resolving]
